FAERS Safety Report 9301314 (Version 2)
Quarter: 2013Q2

REPORT INFORMATION
  Report Type: Spontaneous
  Country: SE (occurrence: SE)
  Receive Date: 20130521
  Receipt Date: 20130620
  Transmission Date: 20140414
  Serious: Yes (Life-Threatening, Hospitalization, Disabling)
  Sender: FDA-Public Use
  Company Number: SE-GLAXOSMITHKLINE-B0893035A

PATIENT
  Age: 61 Year
  Sex: Female

DRUGS (3)
  1. BENLYSTA [Suspect]
     Indication: SYSTEMIC LUPUS ERYTHEMATOSUS
     Dosage: 520MG CYCLIC
     Route: 042
     Dates: start: 20120727, end: 20130508
  2. MYCOPHENOLATE [Suspect]
     Indication: SYSTEMIC LUPUS ERYTHEMATOSUS
     Dosage: 1000MG PER DAY
     Route: 065
     Dates: start: 20120124
  3. PREDNISOLONE [Suspect]
     Indication: SYSTEMIC LUPUS ERYTHEMATOSUS
     Dosage: 10MG PER DAY
     Route: 065
     Dates: start: 2005

REACTIONS (1)
  - Lupus nephritis [Not Recovered/Not Resolved]
